FAERS Safety Report 5354312-8 (Version None)
Quarter: 2007Q2

REPORT INFORMATION
  Report Type: 
  Country: None (occurrence: None)
  Receive Date: 20070612
  Receipt Date: 20060706
  Transmission Date: 20071010
  Serious: No
  Sender: FDA-Public Use
  Company Number: US-BRISTOL-MYERS SQUIBB COMPANY-13435128

PATIENT

DRUGS (2)
  1. ETOPOSIDE [Suspect]
  2. TAXOTERE [Suspect]

REACTIONS (2)
  - COORDINATION ABNORMAL [None]
  - VISION BLURRED [None]
